FAERS Safety Report 5224303-6 (Version None)
Quarter: 2007Q1

REPORT INFORMATION
  Report Type: 
  Country: None (occurrence: None)
  Receive Date: 20070130
  Receipt Date: 20070118
  Transmission Date: 20070707
  Serious: Yes (Hospitalization)
  Sender: FDA-Public Use
  Company Number: FR-GILEAD-2007-0011067

PATIENT
  Sex: Male
  Weight: 66 kg

DRUGS (12)
  1. TRUVADA [Suspect]
     Indication: HIV INFECTION
     Route: 048
     Dates: start: 20070104
  2. EFAVIRENZ [Suspect]
     Indication: HIV INFECTION
     Route: 048
     Dates: start: 20070104
  3. RIMIFON [Concomitant]
     Indication: PULMONARY TUBERCULOSIS
     Route: 048
     Dates: start: 20061205
  4. MYAMBUTOL [Concomitant]
     Indication: PULMONARY TUBERCULOSIS
     Route: 048
     Dates: start: 20061205
  5. PIRILENE [Concomitant]
     Indication: PULMONARY TUBERCULOSIS
     Route: 048
     Dates: start: 20061205
  6. RIFADIN [Concomitant]
     Indication: PULMONARY TUBERCULOSIS
     Route: 048
     Dates: start: 20061205
  7. THIAMINE HCL [Concomitant]
     Indication: PROPHYLAXIS
     Route: 048
     Dates: start: 20061202
  8. VITAMIN B6 [Concomitant]
     Indication: PROPHYLAXIS
     Route: 048
     Dates: start: 20061202
  9. CORTANCYL [Concomitant]
     Indication: PERICARDITIS
     Route: 048
     Dates: start: 20061213
  10. TRIATEC [Concomitant]
     Indication: PERICARDITIS
     Route: 048
     Dates: start: 20061219
  11. CACIT D3 [Concomitant]
     Route: 048
     Dates: start: 20061219
  12. DIFFUK [Concomitant]
     Route: 048
     Dates: start: 20061213

REACTIONS (3)
  - C-REACTIVE PROTEIN INCREASED [None]
  - LYMPHADENOPATHY [None]
  - PYREXIA [None]
